FAERS Safety Report 8925849 (Version 2)
Quarter: 2012Q4

REPORT INFORMATION
  Report Type: 
  Country: US (occurrence: US)
  Receive Date: 20121126
  Receipt Date: 20121206
  Transmission Date: 20130627
  Serious: Yes (Hospitalization, Other)
  Sender: FDA-Public Use
  Company Number: US-ROCHE-108432

PATIENT
  Age: 13 Year
  Sex: Male
  Weight: 55 kg

DRUGS (6)
  1. ROCEPHIN [Suspect]
     Indication: EMPYEMA
     Route: 042
  2. METRONIDAZOLE [Concomitant]
     Indication: EMPYEMA
     Route: 042
  3. GENTAMYCIN [Concomitant]
     Indication: EMPYEMA
     Route: 042
  4. VANCOMYCIN [Concomitant]
     Indication: EMPYEMA
     Route: 042
  5. AMPICILLIN [Concomitant]
     Indication: EMPYEMA
     Route: 042
  6. NAFCILLIN [Concomitant]
     Indication: EMPYEMA
     Route: 042

REACTIONS (9)
  - Pancreatitis [Recovering/Resolving]
  - Lymphocytosis [Unknown]
  - Hyperamylasaemia [Unknown]
  - Lipase increased [Unknown]
  - Renal disorder [Recovering/Resolving]
  - Blood creatinine increased [Unknown]
  - Dehydration [Unknown]
  - Vomiting [Unknown]
  - Abdominal pain [Unknown]
